FAERS Safety Report 9803938 (Version 2)
Quarter: 2014Q1

REPORT INFORMATION
  Report Type: Spontaneous
  Country: ES (occurrence: ES)
  Receive Date: 20140108
  Receipt Date: 20140121
  Transmission Date: 20141002
  Serious: Yes (Hospitalization)
  Sender: FDA-Public Use
  Company Number: ES-PFIZER INC-2014001482

PATIENT
  Age: 41 Year
  Sex: Female

DRUGS (9)
  1. TAZOCEL [Suspect]
     Indication: POST PROCEDURAL INFECTION
     Dosage: 4 G, 4X/DAY
     Route: 042
     Dates: start: 20130309, end: 20130315
  2. TYGACIL [Suspect]
     Indication: POST PROCEDURAL INFECTION
     Dosage: 50 MG, 2X/DAY
     Route: 042
     Dates: start: 20130311, end: 20130315
  3. MYCAMINE [Suspect]
     Indication: POST PROCEDURAL INFECTION
     Dosage: 100 MG, 1X/DAY
     Route: 042
     Dates: start: 20130311, end: 20130315
  4. PANTOPRAZOLE [Concomitant]
     Indication: PROPHYLAXIS AGAINST GASTROINTESTINAL ULCER
     Dosage: 40 MG, 1X/DAY
     Route: 042
     Dates: start: 20130222
  5. PARACETAMOL [Concomitant]
     Indication: PAIN
     Dosage: 1 G, 4X/DAY
     Route: 042
     Dates: start: 20130310
  6. ACTOCORTINA [Concomitant]
     Indication: BRONCHOSPASM
     Dosage: 50 MG, 4X/DAY
     Route: 042
     Dates: start: 20130310, end: 20130312
  7. CLEXANE [Concomitant]
     Indication: THROMBOSIS PROPHYLAXIS
     Dosage: 20 MG, 1X/DAY
     Route: 058
     Dates: start: 20130310
  8. NOLOTIL [Concomitant]
     Indication: PAIN
     Dosage: 2 G, 3X/DAY
     Route: 042
     Dates: start: 20130310
  9. SEGURIL [Concomitant]
     Dosage: 125 MG, DAILY
     Route: 042
     Dates: start: 20130310, end: 20130312

REACTIONS (1)
  - Hepatitis [Recovered/Resolved]
